FAERS Safety Report 20311152 (Version 1)
Quarter: 2022Q1

REPORT INFORMATION
  Report Type: Report from Study
  Country: US (occurrence: US)
  Receive Date: 20220107
  Receipt Date: 20220107
  Transmission Date: 20220423
  Serious: Yes (Hospitalization)
  Sender: FDA-Public Use
  Company Number: US-PFIZER INC-202200005385

PATIENT
  Age: 54 Year
  Sex: Female
  Weight: 83 kg

DRUGS (7)
  1. CYTARABINE [Suspect]
     Active Substance: CYTARABINE
     Dosage: 100, 3000 MG/M2, CYCLE 1
     Dates: start: 20211003, end: 20211115
  2. GILTERITINIB [Suspect]
     Active Substance: GILTERITINIB
     Dosage: 120 MG, CYCLE 1
     Dates: start: 20211012, end: 20211129
  3. DAUNORUBICIN [Suspect]
     Active Substance: DAUNORUBICIN
     Dosage: 178 MG/M2, CYCLE 1
     Dates: start: 20211003, end: 20211005
  4. ZOSYN [Concomitant]
     Active Substance: PIPERACILLIN SODIUM\TAZOBACTAM SODIUM
     Indication: Febrile neutropenia
     Dosage: 4.5 G
  5. MEROPENEM [Concomitant]
     Active Substance: MEROPENEM
     Indication: Febrile neutropenia
     Dosage: 1000 MG X Q8H
  6. ERTAPENEM [Concomitant]
     Active Substance: ERTAPENEM
     Indication: Febrile neutropenia
     Dosage: 1000 MG
  7. NITROFURANTOIN [Concomitant]
     Active Substance: NITROFURANTOIN
     Indication: Urinary tract infection
     Dosage: 100 MG

REACTIONS (1)
  - Febrile neutropenia [Recovered/Resolved]

NARRATIVE: CASE EVENT DATE: 20211129
